FAERS Safety Report 8982975 (Version 1)
Quarter: 2012Q4

REPORT INFORMATION
  Report Type: 
  Country: US (occurrence: US)
  Receive Date: 20121221
  Receipt Date: 20121221
  Transmission Date: 20130627
  Serious: Yes (Hospitalization)
  Sender: FDA-Public Use
  Company Number: US-ABBOTT-12P-163-1023234-00

PATIENT
  Age: 51 Year
  Sex: Male
  Weight: 103.51 kg

DRUGS (1)
  1. HUMIRA [Suspect]
     Indication: ANKYLOSING SPONDYLITIS
     Dates: start: 2007

REACTIONS (3)
  - Deep vein thrombosis [Unknown]
  - Pulmonary embolism [Unknown]
  - Antiphospholipid antibodies [Unknown]
